FAERS Safety Report 18348300 (Version 1)
Quarter: 2020Q4

REPORT INFORMATION
  Report Type: Spontaneous
  Country: US (occurrence: US)
  Receive Date: 20201005
  Receipt Date: 20201005
  Transmission Date: 20210114
  Serious: Yes (Hospitalization, Other)
  Sender: FDA-Public Use
  Company Number: None

PATIENT
  Age: 36 Year
  Sex: Female
  Weight: 67.5 kg

DRUGS (1)
  1. ART NATURALS UNSCENTED [Suspect]
     Active Substance: ALCOHOL
     Indication: COVID-19 PROPHYLAXIS
     Dosage: ?          QUANTITY:1 TEASPOON(S);?
     Route: 061
     Dates: start: 20200628, end: 20201005

REACTIONS (11)
  - Dizziness [None]
  - Vision blurred [None]
  - Paraesthesia oral [None]
  - Hypoaesthesia [None]
  - Hypoaesthesia oral [None]
  - Paraesthesia [None]
  - Impaired driving ability [None]
  - Cerebrovascular accident [None]
  - Presyncope [None]
  - Disorientation [None]
  - Toxicity to various agents [None]

NARRATIVE: CASE EVENT DATE: 20201002
